FAERS Safety Report 12711666 (Version 3)
Quarter: 2016Q3

REPORT INFORMATION
  Report Type: Spontaneous
  Country: IR (occurrence: IR)
  Receive Date: 20160902
  Receipt Date: 20160930
  Transmission Date: 20161109
  Serious: Yes (Hospitalization)
  Sender: FDA-Public Use
  Company Number: IR-SUN PHARMACEUTICAL INDUSTRIES LTD-2016RR-123183

PATIENT
  Age: 54 Year
  Sex: Female

DRUGS (4)
  1. CISPLATIN. [Suspect]
     Active Substance: CISPLATIN
     Indication: BILE DUCT CANCER
     Dosage: DAYS 1 AND REPEATED EVERY 21 DAYS FOR 6 CYCLES
     Route: 065
  2. GEMCITABINE [Suspect]
     Active Substance: GEMCITABINE\GEMCITABINE HYDROCHLORIDE
     Indication: BILE DUCT CANCER
     Dosage: DAYS 1 AND 8 AND REPEATED EVERY 21 DAYS FOR 6 CYCLES
     Route: 065
  3. FLUOROURACIL. [Suspect]
     Active Substance: FLUOROURACIL
     Indication: BILE DUCT CANCER
     Dosage: FOR 21-HOURS AND DAYS 1, 2, 3, AND 4, REPEATED EVERY 21 DAYS FOR 6 CYCLES
     Route: 065
  4. GRANULOCYTE COLONY-STIMULATING FACTOR [Concomitant]
     Active Substance: GRANULOCYTE COLONY-STIMULATING FACTOR NOS
     Indication: PRODUCT USED FOR UNKNOWN INDICATION
     Dosage: SUPPORT
     Route: 065

REACTIONS (1)
  - Stevens-Johnson syndrome [Recovered/Resolved]
